FAERS Safety Report 15281406 (Version 2)
Quarter: 2018Q4

REPORT INFORMATION
  Report Type: Spontaneous
  Country: JP (occurrence: JP)
  Receive Date: 20180815
  Receipt Date: 20181102
  Transmission Date: 20190204
  Serious: Yes (Hospitalization, Other)
  Sender: FDA-Public Use
  Company Number: JP-PFIZER INC-2018317627

PATIENT
  Age: 72 Year
  Sex: Male
  Weight: 59.7 kg

DRUGS (5)
  1. SUTENT [Suspect]
     Active Substance: SUNITINIB MALATE
     Indication: RENAL CELL CARCINOMA
     Dosage: 37.5 MG, 1X/DAY
     Route: 048
     Dates: start: 20180710, end: 20180723
  2. BI-SIFROL [Suspect]
     Active Substance: PRAMIPEXOLE
     Indication: PARKINSONISM
     Dosage: 0.125 MG, 1X/DAY
     Route: 048
     Dates: start: 20180713, end: 20180726
  3. SAWACILLIN [Concomitant]
     Active Substance: AMOXICILLIN
     Indication: SUBPERIOSTEAL ABSCESS
     Dosage: 250 MG, 3X/DAY
     Route: 048
     Dates: start: 20180722, end: 20180725
  4. CEFTRIAXONE SODIUM. [Concomitant]
     Active Substance: CEFTRIAXONE SODIUM
     Indication: SUBPERIOSTEAL ABSCESS
     Dosage: 1 G, 2X/DAY
     Route: 042
     Dates: start: 20180724, end: 20180730
  5. WYPAX [Concomitant]
     Active Substance: LORAZEPAM
     Indication: ANXIETY
     Dosage: 0.5 MG, AS NEEDED
     Route: 048
     Dates: start: 20180710, end: 20180725

REACTIONS (7)
  - Pyrexia [Recovered/Resolved]
  - Neuroleptic malignant syndrome [Recovered/Resolved]
  - Thrombocytopenia [Recovered/Resolved]
  - Periodontal disease [Unknown]
  - Leukopenia [Recovered/Resolved]
  - Bone marrow failure [Unknown]
  - Subperiosteal abscess [Recovered/Resolved]

NARRATIVE: CASE EVENT DATE: 20180721
